FAERS Safety Report 10355593 (Version 5)
Quarter: 2014Q3

REPORT INFORMATION
  Report Type: Spontaneous
  Country: US (occurrence: None)
  Receive Date: 20140728
  Receipt Date: 20140912
  Transmission Date: 20150326
  Serious: Yes (Hospitalization, Other)
  Sender: FDA-Public Use
  Company Number: UNT-2014-004316

PATIENT
  Age: 61 Year
  Sex: Female
  Weight: 70.3 kg

DRUGS (1)
  1. REMODULIN [Suspect]
     Active Substance: TREPROSTINIL
     Indication: COR PULMONALE CHRONIC
     Route: 041
     Dates: start: 20060621

REACTIONS (7)
  - Hypotension [None]
  - Upper respiratory tract infection [None]
  - Sepsis [None]
  - Bacteraemia [None]
  - Cellulitis [None]
  - Infection [None]
  - Morganella infection [None]

NARRATIVE: CASE EVENT DATE: 20140613
